FAERS Safety Report 12455364 (Version 1)
Quarter: 2016Q2

REPORT INFORMATION
  Report Type: Report from Study
  Country: VE (occurrence: VE)
  Receive Date: 20160610
  Receipt Date: 20160610
  Transmission Date: 20160815
  Serious: Yes (Hospitalization)
  Sender: FDA-Public Use
  Company Number: PHHY2016VE079156

PATIENT
  Sex: Female

DRUGS (5)
  1. FORADIL [Suspect]
     Active Substance: FORMOTEROL FUMARATE
     Dosage: 400 UG, UNK
     Route: 048
     Dates: start: 2015
  2. MIFLONIDE [Suspect]
     Active Substance: BUDESONIDE
     Indication: ASTHMA
     Dosage: 12 UG, UNK
     Route: 048
  3. FORADIL [Suspect]
     Active Substance: FORMOTEROL FUMARATE
     Indication: ASTHMA
     Dosage: 200 UG, UNK
     Route: 048
  4. MIFLONIDE [Suspect]
     Active Substance: BUDESONIDE
     Dosage: 12 UG, UNK
     Route: 048
     Dates: start: 2015
  5. XOLAIR [Suspect]
     Active Substance: OMALIZUMAB
     Indication: ASTHMA
     Dosage: 150 MG, EVERY 15 DAYS
     Route: 058
     Dates: start: 2015

REACTIONS (1)
  - Accident [Unknown]
